FAERS Safety Report 13028182 (Version 2)
Quarter: 2016Q4

REPORT INFORMATION
  Report Type: Spontaneous
  Country: JP (occurrence: JP)
  Receive Date: 20161214
  Receipt Date: 20161216
  Transmission Date: 20170207
  Serious: Yes (Other)
  Sender: FDA-Public Use
  Company Number: JP-ABBVIE-16K-087-1804173-00

PATIENT
  Age: 10 Year
  Sex: Female
  Weight: 40.5 kg

DRUGS (3)
  1. HUMIRA [Suspect]
     Active Substance: ADALIMUMAB
     Indication: CROHN^S DISEASE
     Route: 058
  2. MESALAZINE [Concomitant]
     Active Substance: MESALAMINE
     Indication: CROHN^S DISEASE
  3. MESALAZINE [Concomitant]
     Active Substance: MESALAMINE

REACTIONS (8)
  - Takayasu^s arteritis [Unknown]
  - Cough [Unknown]
  - Crohn^s disease [Unknown]
  - Peripheral artery stenosis [Unknown]
  - Arteritis [Unknown]
  - Pain in extremity [Unknown]
  - Complement factor increased [Unknown]
  - Gastrointestinal erosion [Unknown]
